FAERS Safety Report 9801529 (Version 1)
Quarter: 2014Q1

REPORT INFORMATION
  Report Type: Spontaneous
  Country: US (occurrence: US)
  Receive Date: 20140107
  Receipt Date: 20140107
  Transmission Date: 20141002
  Serious: No
  Sender: FDA-Public Use
  Company Number: US-GILEAD-US-CVT-100567

PATIENT
  Age: 85 Year
  Sex: Male
  Weight: 109.75 kg

DRUGS (10)
  1. RANEXA [Suspect]
     Indication: ANGINA PECTORIS
     Route: 048
     Dates: start: 2010
  2. COREG [Concomitant]
  3. FLEXERIL [Concomitant]
  4. IMDUR [Concomitant]
  5. DEMADEX [Concomitant]
  6. SIMVASTATIN [Concomitant]
  7. VITA-B [Concomitant]
  8. MIRAPEX [Concomitant]
  9. ASPIRIN                            /00002701/ [Concomitant]
  10. COLECALCIFEROL [Concomitant]

REACTIONS (2)
  - Breath odour [Not Recovered/Not Resolved]
  - Abnormal faeces [Not Recovered/Not Resolved]
